FAERS Safety Report 4610987-X (Version None)
Quarter: 2005Q1

REPORT INFORMATION
  Report Type: 
  Country: None (occurrence: None)
  Receive Date: 20050315
  Receipt Date: 20050315
  Transmission Date: 20050727
  Serious: Yes (Disabling)
  Sender: FDA-Public Use
  Company Number: None

PATIENT
  Age: 60 Year
  Sex: Female
  Weight: 63.5036 kg

DRUGS (1)
  1. LEVAQUIN [Suspect]
     Indication: PNEUMONIA

REACTIONS (3)
  - TINNITUS [None]
  - TONGUE DISORDER [None]
  - VAGINAL INFECTION [None]
